FAERS Safety Report 9170729 (Version 2)
Quarter: 2013Q2

REPORT INFORMATION
  Report Type: Report from Study
  Country: FR (occurrence: FR)
  Receive Date: 20130319
  Receipt Date: 20130510
  Transmission Date: 20140414
  Serious: Yes (Hospitalization, Other)
  Sender: FDA-Public Use
  Company Number: FR-CELGENEUS-056-C4047-13031149

PATIENT
  Age: 74 Year
  Sex: Male

DRUGS (5)
  1. CC-4047 [Suspect]
     Indication: PLASMA CELL MYELOMA
     Dosage: 4 MILLIGRAM
     Route: 048
     Dates: start: 20130114, end: 20130228
  2. CC-4047 [Suspect]
     Dosage: 4 MILLIGRAM
     Route: 048
     Dates: start: 20130315
  3. DEXAMETHASONE [Concomitant]
     Indication: PLASMA CELL MYELOMA
     Route: 065
  4. KARDEGIC [Concomitant]
     Indication: PROPHYLAXIS
     Route: 065
  5. LOVENOX [Concomitant]
     Indication: PROPHYLAXIS
     Route: 058

REACTIONS (2)
  - Lung infection [Recovered/Resolved]
  - Haemoglobin decreased [Unknown]
